FAERS Safety Report 22114691 (Version 2)
Quarter: 2023Q1

REPORT INFORMATION
  Report Type: Report from Study
  Country: US (occurrence: US)
  Receive Date: 20230320
  Receipt Date: 20230329
  Transmission Date: 20230418
  Serious: Yes (Hospitalization, Other)
  Sender: FDA-Public Use
  Company Number: US-TAKEDA-2023TUS019810

PATIENT
  Age: 72 Year
  Sex: Female

DRUGS (2)
  1. MARIBAVIR [Suspect]
     Active Substance: MARIBAVIR
     Indication: Renal transplant
     Dosage: 2 DOSAGE FORM, BID
     Route: 048
     Dates: start: 20230221
  2. MARIBAVIR [Suspect]
     Active Substance: MARIBAVIR
     Indication: Cytomegalovirus infection
     Dosage: 400 MILLIGRAM, BID
     Route: 048
     Dates: start: 20230302

REACTIONS (5)
  - Lymphoma [Unknown]
  - Bipolar disorder [Unknown]
  - Asthenia [Unknown]
  - Mental disorder [Unknown]
  - Malaise [Unknown]

NARRATIVE: CASE EVENT DATE: 20230301
